FAERS Safety Report 5428461-X (Version None)
Quarter: 2007Q3

REPORT INFORMATION
  Report Type: 
  Country: None (occurrence: None)
  Receive Date: 20070824
  Receipt Date: 20070814
  Transmission Date: 20080115
  Serious: No
  Sender: FDA-Public Use
  Company Number: TPA2007A01710

PATIENT
  Age: 30 Year
  Sex: Male
  Weight: 83.9154 kg

DRUGS (1)
  1. ROZEREM [Suspect]
     Indication: INSOMNIA
     Dosage: 8 MG, PER ORAL
     Route: 048

REACTIONS (3)
  - HEADACHE [None]
  - OPIATES POSITIVE [None]
  - SELF-MEDICATION [None]
